FAERS Safety Report 4375624-0 (Version None)
Quarter: 2004Q2

REPORT INFORMATION
  Report Type: 
  Country: None (occurrence: None)
  Receive Date: 20040607
  Receipt Date: 20040524
  Transmission Date: 20050107
  Serious: Yes (Hospitalization, Other)
  Sender: FDA-Public Use
  Company Number: 2004034781

PATIENT
  Age: 58 Year
  Sex: Female

DRUGS (4)
  1. ZITHROMAX [Suspect]
     Indication: PHARYNGOLARYNGEAL PAIN
     Dosage: (1 IN 1 D), ORAL
     Route: 048
     Dates: start: 20040311
  2. ZITHROMAX [Suspect]
     Indication: SINUSITIS
     Dosage: (1 IN 1 D), ORAL
     Route: 048
     Dates: start: 20040311
  3. CARISOPRODOL (CARISOPRODOL) [Concomitant]
  4. TRICYCLIC ANTIDEPRESSANTS (TRICYCLIC  ANTIDEPRESSANTS) [Concomitant]

REACTIONS (14)
  - ABNORMAL BEHAVIOUR [None]
  - BACK PAIN [None]
  - DELIRIUM [None]
  - DELUSION [None]
  - FALL [None]
  - FEELING HOT [None]
  - HEADACHE [None]
  - HYPERAESTHESIA [None]
  - INSOMNIA [None]
  - LOGORRHOEA [None]
  - MANIA [None]
  - RETCHING [None]
  - SALIVARY HYPERSECRETION [None]
  - SKIN PAPILLOMA [None]
